FAERS Safety Report 7562348-1 (Version None)
Quarter: 2011Q2

REPORT INFORMATION
  Report Type: 
  Country: None (occurrence: None)
  Receive Date: 20110620
  Receipt Date: 20110620
  Transmission Date: 20111010
  Serious: Yes (Other)
  Sender: FDA-Public Use
  Company Number: None

PATIENT
  Age: 53 Year
  Sex: Female
  Weight: 86.1834 kg

DRUGS (1)
  1. CHANTIX [Suspect]
     Indication: SMOKING CESSATION THERAPY
     Dosage: 2 X PER DAY BY MOUTH  2 X PER DAY BY MOUTH

REACTIONS (7)
  - ANGER [None]
  - FEAR [None]
  - SUICIDAL IDEATION [None]
  - DEPRESSION [None]
  - IMPAIRED WORK ABILITY [None]
  - VIOLENCE-RELATED SYMPTOM [None]
  - MEMORY IMPAIRMENT [None]
